FAERS Safety Report 19974139 (Version 1)
Quarter: 2021Q4

REPORT INFORMATION
  Report Type: Spontaneous
  Country: US (occurrence: US)
  Receive Date: 20211019
  Receipt Date: 20211019
  Transmission Date: 20220303
  Serious: Yes (Hospitalization)
  Sender: FDA-Public Use
  Company Number: None

PATIENT
  Age: 64 Year
  Sex: Male
  Weight: 76 kg

DRUGS (2)
  1. CARBOPLATIN [Suspect]
     Active Substance: CARBOPLATIN
     Dates: end: 20210929
  2. TAXOL [Suspect]
     Active Substance: PACLITAXEL
     Dates: end: 20210929

REACTIONS (8)
  - Dizziness [None]
  - Asthenia [None]
  - Gait inability [None]
  - Loss of personal independence in daily activities [None]
  - Atrial fibrillation [None]
  - SARS-CoV-2 test positive [None]
  - Blood pressure systolic decreased [None]
  - Product use issue [None]

NARRATIVE: CASE EVENT DATE: 20211015
